FAERS Safety Report 9323601 (Version 1)
Quarter: 2013Q2

REPORT INFORMATION
  Report Type: Spontaneous
  Country: CA (occurrence: CA)
  Receive Date: 20130603
  Receipt Date: 20130603
  Transmission Date: 20140414
  Serious: Yes (Other)
  Sender: FDA-Public Use
  Company Number: CA-AMGEN-CANSP2013038112

PATIENT
  Age: 37 Year
  Sex: Male

DRUGS (5)
  1. ENBREL [Suspect]
     Indication: ANKYLOSING SPONDYLITIS
     Dosage: 50 MG, UNK
     Dates: start: 20121124
  2. CELEBREX [Concomitant]
     Dosage: UNK, PRN
  3. PANTOLOC                           /01263204/ [Concomitant]
     Dosage: UNK, PRN
  4. VITAMIN D                          /00107901/ [Concomitant]
     Dosage: UNK
  5. VITAMIN C                          /00008001/ [Concomitant]
     Dosage: UNK

REACTIONS (2)
  - Sialoadenitis [Recovered/Resolved]
  - Injection site reaction [Recovered/Resolved]
